FAERS Safety Report 5045102-4 (Version None)
Quarter: 2006Q3

REPORT INFORMATION
  Report Type: 
  Country: None (occurrence: None)
  Receive Date: 20060707
  Receipt Date: 20060626
  Transmission Date: 20061208
  Serious: Yes (Hospitalization)
  Sender: FDA-Public Use
  Company Number: 2006PK01447

PATIENT
  Age: 35 Year
  Sex: Female

DRUGS (8)
  1. SEROQUEL [Suspect]
     Route: 048
  2. CLOZAPIN HEXAL [Interacting]
     Dosage: 12.5 MG- 400 MG
     Dates: start: 20020101, end: 20060105
  3. CLOZAPIN HEXAL [Interacting]
     Route: 048
     Dates: start: 20060106, end: 20060112
  4. CLOZAPIN HEXAL [Interacting]
     Route: 048
     Dates: start: 20060113
  5. HALDOL [Interacting]
     Route: 048
  6. TAVOR [Concomitant]
     Route: 048
     Dates: start: 20060104, end: 20060105
  7. TAVOR [Concomitant]
     Route: 048
     Dates: start: 20060106, end: 20060108
  8. TAVOR [Concomitant]
     Route: 048
     Dates: start: 20060109, end: 20060109

REACTIONS (4)
  - DRUG INTERACTION [None]
  - DRUG LEVEL FLUCTUATING [None]
  - GRAND MAL CONVULSION [None]
  - TREATMENT NONCOMPLIANCE [None]
